FAERS Safety Report 10387629 (Version 2)
Quarter: 2014Q3

REPORT INFORMATION
  Report Type: Spontaneous
  Country: US (occurrence: US)
  Receive Date: 20140815
  Receipt Date: 20140918
  Transmission Date: 20150326
  Serious: Yes (Hospitalization)
  Sender: FDA-Public Use
  Company Number: US-BAYER-2014-120690

PATIENT
  Age: 26 Year
  Sex: Female
  Weight: 46.26 kg

DRUGS (3)
  1. MIRENA [Suspect]
     Active Substance: LEVONORGESTREL
     Indication: CONTRACEPTION
     Dosage: 20 MCG/24HR, CONT
     Route: 015
     Dates: start: 20080723, end: 20121214
  2. PRENATAL [FOLIC ACID,IRON] [Concomitant]
  3. DEPO-PROVERA [Concomitant]
     Active Substance: MEDROXYPROGESTERONE ACETATE

REACTIONS (9)
  - Uterine perforation [Not Recovered/Not Resolved]
  - Device dislocation [Not Recovered/Not Resolved]
  - Emotional distress [Not Recovered/Not Resolved]
  - Pregnancy with contraceptive device [None]
  - Pain [Not Recovered/Not Resolved]
  - Drug ineffective [None]
  - Injury [Not Recovered/Not Resolved]
  - Abortion spontaneous [None]
  - Haemorrhage in pregnancy [None]

NARRATIVE: CASE EVENT DATE: 201209
